FAERS Safety Report 23833578 (Version 1)
Quarter: 2024Q2

REPORT INFORMATION
  Report Type: Report from Study
  Country: US (occurrence: US)
  Receive Date: 20240508
  Receipt Date: 20240508
  Transmission Date: 20240716
  Serious: Yes (Other)
  Sender: FDA-Public Use
  Company Number: US-ABBVIE-5748866

PATIENT
  Sex: Female

DRUGS (3)
  1. HUMIRA [Suspect]
     Active Substance: ADALIMUMAB
     Indication: Rheumatoid arthritis
     Dosage: FORM STRENGTH: 40 MG
     Route: 058
     Dates: start: 20230303
  2. GABAPENTIN [Suspect]
     Active Substance: GABAPENTIN
     Indication: Product used for unknown indication
     Route: 065
  3. GABAPENTIN [Suspect]
     Active Substance: GABAPENTIN
     Indication: Product used for unknown indication
     Dosage: DOSE DECREASED
     Route: 065

REACTIONS (11)
  - Joint effusion [Recovered/Resolved]
  - Injection site swelling [Recovered/Resolved]
  - Arthralgia [Recovered/Resolved with Sequelae]
  - Synovial cyst [Unknown]
  - Arthralgia [Recovering/Resolving]
  - Peripheral swelling [Unknown]
  - Fatigue [Unknown]
  - Pain in extremity [Recovered/Resolved with Sequelae]
  - Injection site erythema [Recovered/Resolved with Sequelae]
  - Sciatica [Unknown]
  - Back disorder [Unknown]

NARRATIVE: CASE EVENT DATE: 20230101
